FAERS Safety Report 10365662 (Version 1)
Quarter: 2014Q3

REPORT INFORMATION
  Report Type: Spontaneous
  Country: US (occurrence: None)
  Receive Date: 20140804
  Receipt Date: 20140804
  Transmission Date: 20150326
  Serious: No
  Sender: FDA-Public Use
  Company Number: None

PATIENT
  Age: 59 Year
  Weight: 104.33 kg

DRUGS (1)
  1. AMBIEN [Suspect]
     Active Substance: ZOLPIDEM TARTRATE
     Indication: PRODUCT USED FOR UNKNOWN INDICATION
     Dates: start: 20140729, end: 20140803

REACTIONS (4)
  - Sinus headache [None]
  - Nightmare [None]
  - Headache [None]
  - Somnolence [None]

NARRATIVE: CASE EVENT DATE: 20140729
